FAERS Safety Report 9935332 (Version 2)
Quarter: 2014Q2

REPORT INFORMATION
  Report Type: Spontaneous
  Country: GB (occurrence: GB)
  Receive Date: 20140228
  Receipt Date: 20140502
  Transmission Date: 20141212
  Serious: Yes (Life-Threatening, Hospitalization, Other)
  Sender: FDA-Public Use
  Company Number: GB-ABBVIE-14P-167-1207856-00

PATIENT
  Age: 80 Year
  Sex: Male

DRUGS (2)
  1. PROSTAP [Suspect]
     Indication: PROSTATE CANCER
     Route: 058
     Dates: start: 20130715
  2. ANTICONVULSANTS (ALL OTHER THERAPEUTIC PRODUCTS) [Concomitant]
     Indication: PRODUCT USED FOR UNKNOWN INDICATION

REACTIONS (15)
  - Brain abscess [Unknown]
  - Inflammation [Unknown]
  - Amnesia [Unknown]
  - Deep vein thrombosis [Unknown]
  - Hydrocephalus [Unknown]
  - Pulmonary embolism [Unknown]
  - Urinary tract infection [Unknown]
  - Mental disorder [Unknown]
  - Drug ineffective [Unknown]
  - Scar [Unknown]
  - Hearing impaired [Unknown]
  - Malaise [Unknown]
  - Injection site abscess [Not Recovered/Not Resolved]
  - Headache [Unknown]
  - Vomiting [Unknown]
